FAERS Safety Report 7371829-5 (Version None)
Quarter: 2011Q1

REPORT INFORMATION
  Report Type: 
  Country: None (occurrence: None)
  Receive Date: 20110322
  Receipt Date: 20110322
  Transmission Date: 20110831
  Serious: Yes (Hospitalization)
  Sender: FDA-Public Use
  Company Number: None

PATIENT
  Sex: Female
  Weight: 10.7 kg

DRUGS (4)
  1. CYTARABINE [Suspect]
     Dosage: 50 MG
  2. VINCRISTINE SULFATE [Suspect]
     Dosage: 1.6 MG
  3. DEXAMETHASONE [Suspect]
     Dosage: 10 MG
  4. PEG-L- ASPARAGINASE (PEGASPARGASE, ONCOSPAR) [Suspect]
     Dosage: 1325 UNIT

REACTIONS (8)
  - BACILLUS TEST POSITIVE [None]
  - PULSE ABSENT [None]
  - SEPTIC SHOCK [None]
  - RESPIRATORY DEPRESSION [None]
  - CARDIAC ARREST [None]
  - FEBRILE NEUTROPENIA [None]
  - CONVULSION [None]
  - MENINGITIS [None]
